FAERS Safety Report 13562772 (Version 1)
Quarter: 2017Q2

REPORT INFORMATION
  Report Type: Spontaneous
  Country: US (occurrence: US)
  Receive Date: 20170518
  Receipt Date: 20170518
  Transmission Date: 20170830
  Serious: Yes (Hospitalization)
  Sender: FDA-Public Use
  Company Number: None

PATIENT
  Age: 11 Year
  Sex: Female

DRUGS (6)
  1. PREDNISONE. [Concomitant]
     Active Substance: PREDNISONE
  2. TOBI PODHALER [Suspect]
     Active Substance: TOBRAMYCIN
     Indication: BRONCHITIS
     Dosage: 112MG EVERYOTHER MONTH INHALATION
     Route: 055
     Dates: start: 20131004
  3. CENTRUM [Concomitant]
     Active Substance: VITAMINS
  4. RAPAMUNE [Concomitant]
     Active Substance: SIROLIMUS
  5. ACTIMMUNE [Suspect]
     Active Substance: INTERFERON GAMMA-1B
     Indication: IMMUNODEFICIENCY
     Dosage: 0.25ML TUES, THURS, SAT SUB-Q
     Route: 058
     Dates: start: 20130501
  6. COLISTEMETHATE 150 MG [Concomitant]
     Active Substance: COLISTIMETHATE SODIUM

REACTIONS (1)
  - Hospitalisation [None]
